FAERS Safety Report 5290550-0 (Version None)
Quarter: 2007Q2

REPORT INFORMATION
  Report Type: 
  Country: None (occurrence: None)
  Receive Date: 20070405
  Receipt Date: 20070405
  Transmission Date: 20071010
  Serious: Yes (Hospitalization)
  Sender: FDA-Public Use
  Company Number: None

PATIENT
  Sex: Male
  Weight: 96 kg

DRUGS (3)
  1. CYTARABINE [Suspect]
     Dosage: 1498 MG
     Dates: end: 20070314
  2. DAUNORUBICIN HCL [Suspect]
     Dosage: 585 MG
     Dates: end: 20070309
  3. ETOPOSIDE [Suspect]
     Dosage: 630 MG
     Dates: end: 20070309

REACTIONS (20)
  - ANOREXIA [None]
  - ASCITES [None]
  - BLOOD CREATININE INCREASED [None]
  - BONE MARROW FAILURE [None]
  - CARDIAC ARREST [None]
  - CARDIOMEGALY [None]
  - CHILLS [None]
  - DIARRHOEA [None]
  - GALLBLADDER DISORDER [None]
  - HYPOTENSION [None]
  - HYPOXIA [None]
  - ILEUS [None]
  - NAUSEA [None]
  - OEDEMA [None]
  - PLEURAL EFFUSION [None]
  - PULMONARY OEDEMA [None]
  - RASH [None]
  - RESPIRATORY ARREST [None]
  - SEPSIS [None]
  - TACHYCARDIA [None]
